FAERS Safety Report 7314002-9 (Version None)
Quarter: 2011Q1

REPORT INFORMATION
  Report Type: 
  Country: None (occurrence: None)
  Receive Date: 20110225
  Receipt Date: 20110221
  Transmission Date: 20110831
  Serious: Yes (Death, Other)
  Sender: FDA-Public Use
  Company Number: PHHY2009CA16629

PATIENT
  Sex: Male

DRUGS (1)
  1. SANDOSTATIN LAR [Suspect]
     Indication: CARCINOID TUMOUR
     Dosage: 30 MG, EVERY 4 WEEKS
     Route: 030
     Dates: start: 20050923, end: 20110204

REACTIONS (4)
  - BLOOD PRESSURE INCREASED [None]
  - PALLIATIVE CARE [None]
  - HEART RATE DECREASED [None]
  - TERMINAL STATE [None]
